FAERS Safety Report 21026594 (Version 4)
Quarter: 2022Q3

REPORT INFORMATION
  Report Type: Report from Study
  Country: US (occurrence: ES)
  Receive Date: 20220630
  Receipt Date: 20220806
  Transmission Date: 20221027
  Serious: No
  Sender: FDA-Public Use
  Company Number: US-SANOFI-01158388

PATIENT
  Sex: Male

DRUGS (3)
  1. DUPIXENT [Suspect]
     Active Substance: DUPILUMAB
     Indication: Dermatitis atopic
     Dosage: UNK
     Dates: start: 20211011, end: 20211229
  2. CIBINQO [Concomitant]
     Active Substance: ABROCITINIB
     Dates: start: 20211123
  3. EUCRISA [Concomitant]
     Active Substance: CRISABOROLE
     Dates: start: 20211123

REACTIONS (2)
  - Drug ineffective [Unknown]
  - Paternal exposure during pregnancy [Unknown]
